FAERS Safety Report 7542936-9 (Version None)
Quarter: 2011Q2

REPORT INFORMATION
  Report Type: 
  Country: None (occurrence: None)
  Receive Date: 20110613
  Receipt Date: 20110531
  Transmission Date: 20111010
  Serious: Yes (Hospitalization, Disabling, Other)
  Sender: FDA-Public Use
  Company Number: PHEH2008US08678

PATIENT
  Sex: Female

DRUGS (83)
  1. LEXAPRO [Concomitant]
  2. SYNTHROID [Concomitant]
  3. COMBIVENT [Concomitant]
  4. WELLBUTRIN [Concomitant]
  5. LASIX [Concomitant]
  6. PREMARIN [Concomitant]
  7. ADDERALL 10 [Concomitant]
  8. MULTIVITAMIN ^LAPPE^ [Concomitant]
  9. VOLTAREN                           /00372303/ [Concomitant]
  10. MUCINEX [Concomitant]
  11. FLONASE [Concomitant]
  12. BISACODYL [Concomitant]
     Dosage: ONCE DAILY AS NEEDED
  13. TESSALON [Concomitant]
  14. LEVSIN [Concomitant]
  15. CYMBALTA [Concomitant]
  16. PERCOCET [Concomitant]
  17. DIAZEPAM [Concomitant]
  18. ZOVIRAX [Concomitant]
  19. ASCORBIC ACID [Concomitant]
  20. ACYCLOVIR [Concomitant]
     Dosage: 400 MG, EVERY TWELVE HOUR
     Route: 048
  21. DITROPAN XL [Concomitant]
  22. VIVELLE-DOT [Concomitant]
     Dosage: 0.1
  23. SUDAFED 12 HOUR [Concomitant]
  24. DOXEPIN [Concomitant]
  25. ADVAIR DISKUS 100/50 [Concomitant]
  26. FENTANYL [Concomitant]
  27. CIPROFLOXACIN [Concomitant]
     Dosage: UNK
     Dates: end: 20090131
  28. ALLEGRA [Concomitant]
  29. ARICEPT [Concomitant]
  30. BENADRYL ^ACHE^ [Concomitant]
  31. NASONEX [Concomitant]
  32. DARVOCET-N 50 [Concomitant]
  33. EFFEXOR [Concomitant]
  34. CLARITIN [Concomitant]
  35. SINGULAIR [Concomitant]
     Dosage: 10 MG, DAILY AT NIGHT
     Route: 048
  36. LOMOTIL [Concomitant]
  37. PRAVACHOL [Concomitant]
  38. AGGRENOX [Concomitant]
  39. SOMA [Concomitant]
  40. DEPO-MEDROL [Concomitant]
  41. DESYREL [Concomitant]
  42. SELENIUM [Concomitant]
  43. ST. JOHN'S WORT [Concomitant]
  44. ESTRADERM [Concomitant]
     Dosage: ONE PATCH EVERY THURSDAY
  45. MICARDIS [Concomitant]
  46. BEXTRA [Concomitant]
     Dosage: UNK
  47. ACTIVASE [Concomitant]
  48. VITAMIN B6 [Concomitant]
  49. PREMPRO [Concomitant]
  50. FLOVENT [Concomitant]
  51. NORVASC [Concomitant]
     Dosage: 10 MG, DAILY
     Route: 048
  52. OXYCONTIN [Concomitant]
     Dosage: 10 MG, Q12H
     Route: 048
  53. FOSAMAX [Suspect]
     Dosage: UNK
  54. PLAVIX [Concomitant]
  55. VICODIN [Concomitant]
     Dosage: UNK
  56. KLONOPIN [Concomitant]
  57. ASPIRIN [Concomitant]
  58. CALCIUM CARBONATE [Concomitant]
  59. SOLU-MEDROL [Concomitant]
  60. SINUTAB ^ACHE^ [Concomitant]
  61. NITROGLYCERIN [Concomitant]
  62. SEREVENT [Concomitant]
  63. XANAX [Concomitant]
     Dosage: UNK
  64. CORTISONE ACETATE [Concomitant]
  65. PROMETRIUM [Concomitant]
  66. PRILOSEC [Concomitant]
  67. ESTROGEN NOS [Concomitant]
  68. ZOMETA [Suspect]
     Indication: BONE DENSITY ABNORMAL
     Dosage: 4 MG /EVERY 3 MONTHS
     Route: 042
     Dates: start: 20040119, end: 20070701
  69. THYROID TAB [Concomitant]
     Dosage: UNK
  70. ALTACE [Concomitant]
  71. CELEBREX [Concomitant]
  72. TERAZOSIN HCL [Concomitant]
     Dosage: UNK
  73. VANCOMYCIN [Concomitant]
  74. SEROQUEL [Concomitant]
  75. DIFLUCAN [Concomitant]
  76. ASTELIN [Concomitant]
  77. ATROPINE SULFATE [Concomitant]
  78. GLUCOSAMINE [Concomitant]
  79. VITAMIN E [Concomitant]
  80. FOLIC ACID [Concomitant]
     Dosage: 1 MG, DAILY
     Route: 048
  81. POTASSIUM CHLORIDE [Concomitant]
     Dosage: 20 MG, DAILY
     Route: 048
  82. OSCAL [Concomitant]
     Dosage: 500 MG, DAILY
     Route: 048
  83. LORTAB [Concomitant]
     Dosage: 5/500 MG 1 EVERY FOUR HOURS AS NEEDED
     Route: 048

REACTIONS (89)
  - CHRONIC OBSTRUCTIVE PULMONARY DISEASE [None]
  - DIVERTICULUM INTESTINAL [None]
  - LIP AND/OR ORAL CAVITY CANCER [None]
  - FAECAL INCONTINENCE [None]
  - MENOPAUSE [None]
  - SINUSITIS [None]
  - HYDROPNEUMOTHORAX [None]
  - CYST [None]
  - EMPHYSEMA [None]
  - RETCHING [None]
  - INJURY CORNEAL [None]
  - DYSPNOEA EXERTIONAL [None]
  - WHEEZING [None]
  - COLONIC POLYP [None]
  - BLOOD CALCIUM DECREASED [None]
  - TREMOR [None]
  - TOOTH DISORDER [None]
  - RIB FRACTURE [None]
  - MASTICATION DISORDER [None]
  - OSTEORADIONECROSIS [None]
  - ABDOMINAL PAIN UPPER [None]
  - OSTEONECROSIS OF JAW [None]
  - ABSCESS [None]
  - URINARY INCONTINENCE [None]
  - FALL [None]
  - PAIN IN EXTREMITY [None]
  - BRONCHOPLEURAL FISTULA [None]
  - WOUND INFECTION STAPHYLOCOCCAL [None]
  - RECTAL POLYP [None]
  - BREAST CALCIFICATIONS [None]
  - TRANSIENT ISCHAEMIC ATTACK [None]
  - IRRITABLE BOWEL SYNDROME [None]
  - BACK PAIN [None]
  - TIBIA FRACTURE [None]
  - INJURY [None]
  - ROTATOR CUFF SYNDROME [None]
  - FOOT DEFORMITY [None]
  - OEDEMA PERIPHERAL [None]
  - GASTRITIS [None]
  - CHONDROMALACIA [None]
  - PLEURAL FIBROSIS [None]
  - AORTIC ARTERIOSCLEROSIS [None]
  - LIP DISCOLOURATION [None]
  - PAIN [None]
  - ANHEDONIA [None]
  - OSTEOPENIA [None]
  - EMPYEMA [None]
  - CEREBROVASCULAR DISORDER [None]
  - GAIT DISTURBANCE [None]
  - SOMNOLENCE [None]
  - TOOTH FRACTURE [None]
  - TOOTHACHE [None]
  - CARDIOMEGALY [None]
  - PNEUMOTHORAX [None]
  - DIARRHOEA [None]
  - SPINAL OSTEOARTHRITIS [None]
  - TENDON RUPTURE [None]
  - THORACIC VERTEBRAL FRACTURE [None]
  - NEUROPATHY PERIPHERAL [None]
  - ANXIETY [None]
  - BACTERIAL DISEASE CARRIER [None]
  - ATELECTASIS [None]
  - RHINITIS [None]
  - LACERATION [None]
  - MENTAL STATUS CHANGES [None]
  - PULMONARY FIBROSIS [None]
  - RENAL FAILURE ACUTE [None]
  - UPPER-AIRWAY COUGH SYNDROME [None]
  - PULMONARY AIR LEAKAGE [None]
  - METASTASES TO LYMPH NODES [None]
  - MUSCULOSKELETAL CHEST PAIN [None]
  - SINUS BRADYCARDIA [None]
  - RASH [None]
  - LUNG INFECTION [None]
  - CHEST PAIN [None]
  - DEPRESSION [None]
  - INSOMNIA [None]
  - OSTEOPOROSIS [None]
  - FOOT FRACTURE [None]
  - CERVICAL SPINAL STENOSIS [None]
  - OSTEOARTHRITIS [None]
  - FIBULA FRACTURE [None]
  - EYE DISCHARGE [None]
  - LUNG NEOPLASM MALIGNANT [None]
  - ANTIBIOTIC RESISTANT STAPHYLOCOCCUS TEST [None]
  - COUGH [None]
  - NAUSEA [None]
  - BLOOD UREA NITROGEN/CREATININE RATIO INCREASED [None]
  - LYMPHADENOPATHY MEDIASTINAL [None]
